FAERS Safety Report 25330434 (Version 1)
Quarter: 2025Q2

REPORT INFORMATION
  Report Type: Report from Study
  Country: BR (occurrence: BR)
  Receive Date: 20250519
  Receipt Date: 20250519
  Transmission Date: 20250717
  Serious: Yes (Other)
  Sender: TAKEDA
  Company Number: BR-TAKEDA-2025TUS046457

PATIENT
  Age: 50 Year

DRUGS (1)
  1. ANTI-INHIBITOR COAGULANT COMPLEX [Suspect]
     Active Substance: ANTI-INHIBITOR COAGULANT COMPLEX
     Indication: Factor VIII deficiency
     Dosage: 150 MILLIGRAM, 1/WEEK
     Dates: start: 201804, end: 202306

REACTIONS (1)
  - Treatment failure [Unknown]
